FAERS Safety Report 11635185 (Version 1)
Quarter: 2015Q4

REPORT INFORMATION
  Report Type: Spontaneous
  Country: US (occurrence: US)
  Receive Date: 20151015
  Receipt Date: 20151015
  Transmission Date: 20160304
  Serious: No
  Sender: FDA-Public Use
  Company Number: US-SA-2015SA069772

PATIENT
  Sex: Male

DRUGS (1)
  1. LEMTRADA [Suspect]
     Active Substance: ALEMTUZUMAB
     Route: 041
     Dates: start: 20150518

REACTIONS (4)
  - Chills [Unknown]
  - Underdose [Unknown]
  - Musculoskeletal stiffness [Unknown]
  - Nausea [Unknown]

NARRATIVE: CASE EVENT DATE: 20150518
